FAERS Safety Report 7810691-0 (Version None)
Quarter: 2011Q4

REPORT INFORMATION
  Report Type: 
  Country: None (occurrence: None)
  Receive Date: 20111013
  Receipt Date: 20110929
  Transmission Date: 20120403
  Serious: Yes (Other)
  Sender: FDA-Public Use
  Company Number: BR-AMGEN-BRASP2011051697

PATIENT
  Sex: Male

DRUGS (2)
  1. METHOTREXATE [Concomitant]
     Indication: ANKYLOSING SPONDYLITIS
     Dosage: UNK
  2. ENBREL [Suspect]
     Indication: ANKYLOSING SPONDYLITIS
     Dosage: 50 MG
     Route: 058
     Dates: start: 20110915

REACTIONS (1)
  - GENITAL INJURY [None]
